FAERS Safety Report 7975443-X (Version None)
Quarter: 2011Q4

REPORT INFORMATION
  Report Type: 
  Country: None (occurrence: None)
  Receive Date: 20111213
  Receipt Date: 20110928
  Transmission Date: 20120403
  Serious: No
  Sender: FDA-Public Use
  Company Number: US-AMGEN-USASP2011050196

PATIENT
  Age: 22 Year
  Sex: Male

DRUGS (5)
  1. ENBREL [Suspect]
     Indication: AUTOIMMUNE ARTHRITIS
  2. TREXALL [Concomitant]
     Dosage: UNK
     Dates: start: 20110301
  3. PLAQUENIL [Concomitant]
     Dosage: UNK
     Dates: start: 20110101
  4. ENBREL [Suspect]
     Indication: ARTHRITIS
  5. ENBREL [Suspect]
     Indication: RHEUMATOID ARTHRITIS
     Dosage: 50 MG, QWK
     Dates: start: 20110511

REACTIONS (3)
  - NEPHROLITHIASIS [None]
  - GASTROENTERITIS VIRAL [None]
  - CHEST PAIN [None]
